FAERS Safety Report 4476760-0 (Version None)
Quarter: 2004Q4

REPORT INFORMATION
  Report Type: 
  Country: None (occurrence: None)
  Receive Date: 20041015
  Receipt Date: 20041015
  Transmission Date: 20050328
  Serious: Yes (Other)
  Sender: FDA-Public Use
  Company Number: None

PATIENT
  Sex: Female

DRUGS (1)
  1. PHENYTOIN SOD EXT 100 MG [Suspect]
     Indication: CONVULSION
     Dosage: 5 TABS MWF 4 TABS TTSS

REACTIONS (2)
  - PHARMACEUTICAL PRODUCT COMPLAINT [None]
  - URTICARIA [None]
